FAERS Safety Report 24704245 (Version 7)
Quarter: 2025Q4

REPORT INFORMATION
  Report Type: Report from Study
  Country: EU (occurrence: EU)
  Receive Date: 20241206
  Receipt Date: 20251017
  Transmission Date: 20260117
  Serious: Yes (Hospitalization)
  Sender: ABBVIE
  Company Number: EU-ABBVIE-6032525

PATIENT
  Age: 65 Year
  Sex: Male

DRUGS (2)
  1. CARBIDOPA [Suspect]
     Active Substance: CARBIDOPA
     Indication: Parkinson^s disease
     Dosage: MD 8.0 ML, CRT: 2.0 ML/H, ED: 1.0 ML
     Route: 050
     Dates: start: 20240604
  2. CARBIDOPA [Suspect]
     Active Substance: CARBIDOPA
     Dosage: MD 8.2 ML, CRT: 1.9 ML/H, ED: 1.0 ML
     Route: 050

REACTIONS (5)
  - Suicide attempt [Not Recovered/Not Resolved]
  - Depression [Not Recovered/Not Resolved]
  - Suicidal ideation [Not Recovered/Not Resolved]
  - Fluid intake reduced [Unknown]
  - General physical health deterioration [Not Recovered/Not Resolved]

NARRATIVE: CASE EVENT DATE: 20240101
